FAERS Safety Report 17452428 (Version 2)
Quarter: 2020Q4

REPORT INFORMATION
  Report Type: Spontaneous
  Country: DE (occurrence: DE)
  Receive Date: 20200224
  Receipt Date: 20201205
  Transmission Date: 20210113
  Serious: Yes (Hospitalization, Other)
  Sender: FDA-Public Use
  Company Number: NVSC2020DE044167

PATIENT
  Age: 49 Year
  Sex: Female

DRUGS (8)
  1. AMOXICILLIN. [Suspect]
     Active Substance: AMOXICILLIN
     Indication: PRODUCT USED FOR UNKNOWN INDICATION
     Dosage: UNK
     Route: 065
  2. OCRELIZUMAB. [Suspect]
     Active Substance: OCRELIZUMAB
     Dosage: UNK
     Route: 042
     Dates: start: 20171221
  3. OCRELIZUMAB. [Suspect]
     Active Substance: OCRELIZUMAB
     Indication: PRIMARY PROGRESSIVE MULTIPLE SCLEROSIS
     Dosage: 600 MG
     Route: 042
     Dates: start: 20171207, end: 20171207
  4. OCRELIZUMAB. [Suspect]
     Active Substance: OCRELIZUMAB
     Dosage: UNK (11/NOV/2019)
     Route: 042
     Dates: start: 20180601
  5. PANTOPRAZOL [Concomitant]
     Active Substance: PANTOPRAZOLE SODIUM
     Indication: PRODUCT USED FOR UNKNOWN INDICATION
     Dosage: 40 MG
     Route: 065
  6. DESOGESTREL [Concomitant]
     Active Substance: DESOGESTREL
     Indication: PRODUCT USED FOR UNKNOWN INDICATION
     Dosage: 75 UG, QD (DESOGRESTEL ARISTO)
     Route: 065
  7. SATIVEX [Concomitant]
     Active Substance: NABIXIMOLS
     Indication: PRODUCT USED FOR UNKNOWN INDICATION
     Dosage: UNK (SPRAY)
     Route: 065
  8. DEKRISTOL [Concomitant]
     Active Substance: CHOLECALCIFEROL
     Indication: PRODUCT USED FOR UNKNOWN INDICATION
     Dosage: 20000 IU, QW
     Route: 065

REACTIONS (36)
  - Dehydration [Recovered/Resolved]
  - Oesophageal infection [Recovered/Resolved]
  - Pyrexia [Recovered/Resolved]
  - Decreased appetite [Recovered/Resolved]
  - Foot fracture [Recovered/Resolved with Sequelae]
  - Wound haemorrhage [Recovered/Resolved]
  - Erythema [Recovered/Resolved]
  - Asthenia [Recovered/Resolved]
  - Erythema [Not Recovered/Not Resolved]
  - Pain in extremity [Not Recovered/Not Resolved]
  - Hot flush [Recovered/Resolved]
  - Gait disturbance [Not Recovered/Not Resolved]
  - Pain [Not Recovered/Not Resolved]
  - Atonic urinary bladder [Recovered/Resolved]
  - Food aversion [Recovered/Resolved]
  - Diarrhoea [Recovered/Resolved]
  - Multiple sclerosis relapse [Recovering/Resolving]
  - Psoriasis [Not Recovered/Not Resolved]
  - Joint stiffness [Recovered/Resolved]
  - Foot deformity [Not Recovered/Not Resolved]
  - Peripheral swelling [Recovered/Resolved]
  - Colitis [Recovered/Resolved]
  - Fungal skin infection [Recovered/Resolved]
  - Peripheral swelling [Not Recovered/Not Resolved]
  - Drug intolerance [Unknown]
  - Dyspepsia [Recovered/Resolved]
  - Fall [Unknown]
  - Muscle spasticity [Not Recovered/Not Resolved]
  - Hand fracture [Recovered/Resolved with Sequelae]
  - Blood pressure increased [Recovered/Resolved]
  - C-reactive protein increased [Recovered/Resolved]
  - Feeling hot [Not Recovered/Not Resolved]
  - Hypoaesthesia [Recovered/Resolved]
  - Nasopharyngitis [Recovered/Resolved]
  - Balance disorder [Unknown]
  - Peripheral swelling [Recovered/Resolved]

NARRATIVE: CASE EVENT DATE: 20171207
